FAERS Safety Report 21317925 (Version 1)
Quarter: 2022Q3

REPORT INFORMATION
  Report Type: Spontaneous
  Country: US (occurrence: US)
  Receive Date: 20220911
  Receipt Date: 20220911
  Transmission Date: 20221027
  Serious: No
  Sender: FDA-Public Use
  Company Number: US-SA-SAC20220826001127

PATIENT
  Age: 64 Year
  Sex: Male

DRUGS (1)
  1. DUPIXENT [Suspect]
     Active Substance: DUPILUMAB
     Indication: Sinus polyp degeneration
     Dosage: 300MG EVERY OTHER WEEK
     Route: 058
     Dates: start: 202112

REACTIONS (3)
  - Headache [Unknown]
  - Back pain [Unknown]
  - Product use in unapproved indication [Unknown]
